FAERS Safety Report 7900274-6 (Version None)
Quarter: 2011Q4

REPORT INFORMATION
  Report Type: 
  Country: None (occurrence: None)
  Receive Date: 20111108
  Receipt Date: 20111027
  Transmission Date: 20120403
  Serious: Yes (Hospitalization)
  Sender: FDA-Public Use
  Company Number: CA-JNJFOC-20111100950

PATIENT
  Sex: Male
  Weight: 75 kg

DRUGS (6)
  1. COZAAR [Concomitant]
  2. CORTISONE ACETATE [Concomitant]
     Route: 048
     Dates: start: 20100801
  3. CALCET PLUS [Concomitant]
  4. EMPRACET [Concomitant]
  5. REMICADE [Suspect]
     Indication: CROHN'S DISEASE
  6. CLONAZEPAM [Concomitant]

REACTIONS (1)
  - SMALL INTESTINE CARCINOMA [None]
